FAERS Safety Report 10172527 (Version 1)
Quarter: 2014Q2

REPORT INFORMATION
  Report Type: Spontaneous
  Country: CA (occurrence: CA)
  Receive Date: 20140515
  Receipt Date: 20140515
  Transmission Date: 20141212
  Serious: Yes (Other)
  Sender: FDA-Public Use
  Company Number: CA-009507513-1405CAN004725

PATIENT
  Sex: 0

DRUGS (2)
  1. POSANOL [Suspect]
     Route: 048
  2. MYCAMINE [Suspect]
     Route: 042

REACTIONS (3)
  - Fungal infection [Unknown]
  - Drug ineffective [Unknown]
  - Laboratory test interference [Unknown]
